FAERS Safety Report 5285732-8 (Version None)
Quarter: 2007Q1

REPORT INFORMATION
  Report Type: 
  Country: None (occurrence: None)
  Receive Date: 20070126
  Receipt Date: 20051004
  Transmission Date: 20070707
  Serious: No
  Sender: FDA-Public Use
  Company Number: 2006CT000791

PATIENT
  Age: 20 Year
  Sex: Female
  Weight: 52.1637 kg

DRUGS (8)
  1. VENTAVIS [Suspect]
     Indication: PULMONARY HYPERTENSION
     Dosage: 5 UG;6XD;INH
     Route: 055
     Dates: start: 20050713, end: 20051004
  2. WARFARIN SODIUM [Concomitant]
  3. TRIVORA-21 [Concomitant]
  4. TRACLEER [Concomitant]
  5. VITAMIN CAP [Concomitant]
  6. FERROUS SULFATE [Concomitant]
  7. CALCIUM [Concomitant]
  8. ASCORBIC ACID [Concomitant]

REACTIONS (1)
  - HYPOAESTHESIA [None]
